FAERS Safety Report 7225143-9 (Version None)
Quarter: 2011Q1

REPORT INFORMATION
  Report Type: 
  Country: None (occurrence: None)
  Receive Date: 20110113
  Receipt Date: 20110107
  Transmission Date: 20110831
  Serious: Yes (Death)
  Sender: FDA-Public Use
  Company Number: A0902890A

PATIENT
  Age: 89 Year
  Sex: Male

DRUGS (1)
  1. PROMACTA [Suspect]
     Indication: THROMBOCYTOPENIA
     Dosage: 125MG PER DAY
     Route: 048
     Dates: start: 20100108, end: 20100716

REACTIONS (2)
  - CARDIAC ARREST [None]
  - HIP FRACTURE [None]
